FAERS Safety Report 15794394 (Version 1)
Quarter: 2019Q1

REPORT INFORMATION
  Report Type: Spontaneous
  Country: CA (occurrence: CA)
  Receive Date: 20190107
  Receipt Date: 20190107
  Transmission Date: 20190417
  Serious: Yes (Death, Life-Threatening, Hospitalization)
  Sender: FDA-Public Use
  Company Number: CA-JNJFOC-20190105289

PATIENT
  Age: 78 Year
  Sex: Male
  Weight: 53 kg

DRUGS (15)
  1. METOPROLOL. [Concomitant]
     Active Substance: METOPROLOL
     Route: 065
  2. DURAGESIC [Suspect]
     Active Substance: FENTANYL
     Indication: NON-CARDIAC CHEST PAIN
     Route: 062
  3. HALDOL [Concomitant]
     Active Substance: HALOPERIDOL
     Route: 065
  4. COUMADIN [Concomitant]
     Active Substance: WARFARIN SODIUM
     Route: 065
  5. EX-LAX REGULAR STRENGTH STIMULANT LAXATIVE [Concomitant]
     Active Substance: SENNOSIDES
     Route: 065
  6. DURAGESIC [Suspect]
     Active Substance: FENTANYL
     Indication: BACK PAIN
     Route: 062
  7. DURAGESIC [Suspect]
     Active Substance: FENTANYL
     Indication: COUGH
     Route: 062
  8. ATORVASTATIN CALCIUM. [Concomitant]
     Active Substance: ATORVASTATIN CALCIUM
     Route: 065
  9. ROCURONIUM [Concomitant]
     Active Substance: ROCURONIUM BROMIDE
     Route: 065
  10. ALTACE [Concomitant]
     Active Substance: RAMIPRIL
     Route: 065
  11. LASIX [Concomitant]
     Active Substance: FUROSEMIDE
     Route: 065
  12. VERSED [Concomitant]
     Active Substance: MIDAZOLAM HYDROCHLORIDE
     Route: 030
  13. FENTANYL CITRATE. [Suspect]
     Active Substance: FENTANYL CITRATE
     Indication: AGITATION
     Route: 042
  14. FLEET ENEMA [Concomitant]
     Active Substance: SODIUM PHOSPHATE, DIBASIC\SODIUM PHOSPHATE, MONOBASIC
     Route: 065
  15. METHOTREXATE. [Concomitant]
     Active Substance: METHOTREXATE
     Route: 065

REACTIONS (21)
  - Sepsis [Fatal]
  - Pyrexia [Fatal]
  - Thoracic cavity drainage [Fatal]
  - Nephropathy [Fatal]
  - Slow response to stimuli [Fatal]
  - Pneumonia [Fatal]
  - Chromaturia [Fatal]
  - Endotracheal intubation [Fatal]
  - Coagulopathy [Fatal]
  - Memory impairment [Fatal]
  - Dyspnoea [Fatal]
  - Biopsy liver [Fatal]
  - Vision blurred [Fatal]
  - Restlessness [Fatal]
  - Urine output decreased [Fatal]
  - Decreased appetite [Fatal]
  - Disorientation [Fatal]
  - Asthenia [Fatal]
  - Pneumothorax [Fatal]
  - Somnolence [Fatal]
  - Agitation [Fatal]
